FAERS Safety Report 13060354 (Version 32)
Quarter: 2020Q2

REPORT INFORMATION
  Report Type: Report from Study
  Country: SK (occurrence: SK)
  Receive Date: 20161223
  Receipt Date: 20200521
  Transmission Date: 20200713
  Serious: Yes (Hospitalization)
  Sender: FDA-Public Use
  Company Number: SK-SA-2016SA205066

PATIENT
  Age: 39 Year
  Sex: Female
  Weight: 50 kg

DRUGS (1)
  1. ALEMTUZUMAB [Suspect]
     Active Substance: ALEMTUZUMAB
     Indication: RELAPSING MULTIPLE SCLEROSIS
     Dosage: 12 MG,QD
     Route: 041
     Dates: start: 20161024, end: 20161028

REACTIONS (22)
  - Paraesthesia [Recovered/Resolved]
  - Iridocyclitis [Recovered/Resolved with Sequelae]
  - Tinea pedis [Not Recovered/Not Resolved]
  - Uveitis [Recovered/Resolved]
  - Pyrexia [Recovered/Resolved]
  - Iridocyclitis [Recovered/Resolved with Sequelae]
  - Rash [Recovered/Resolved]
  - Menstruation irregular [Recovering/Resolving]
  - Dysarthria [Recovered/Resolved]
  - Viral infection [Recovered/Resolved]
  - Leukopenia [Recovered/Resolved]
  - Leukopenia [Recovered/Resolved]
  - Iridocyclitis [Recovered/Resolved]
  - Diarrhoea [Recovered/Resolved]
  - Onychomycosis [Not Recovered/Not Resolved]
  - Viral infection [Recovered/Resolved]
  - Vulvovaginal mycotic infection [Recovered/Resolved]
  - Iridocyclitis [Recovered/Resolved with Sequelae]
  - Cataract subcapsular [Recovering/Resolving]
  - Uveitis [Recovered/Resolved]
  - Normocytic anaemia [Not Recovered/Not Resolved]
  - Cystitis [Recovered/Resolved]

NARRATIVE: CASE EVENT DATE: 20161024
